FAERS Safety Report 15006751 (Version 2)
Quarter: 2018Q2

REPORT INFORMATION
  Report Type: Report from Study
  Country: US (occurrence: US)
  Receive Date: 20180613
  Receipt Date: 20180614
  Transmission Date: 20180711
  Serious: No
  Sender: FDA-Public Use
  Company Number: US-US WORLDMEDS, LLC-USW201801-000043

PATIENT
  Age: 79 Year
  Sex: Female
  Weight: 53.52 kg

DRUGS (5)
  1. STALEVO [Concomitant]
     Active Substance: CARBIDOPA\ENTACAPONE\LEVODOPA
  2. APOKYN [Suspect]
     Active Substance: APOMORPHINE HYDROCHLORIDE
     Route: 058
     Dates: start: 20180105
  3. PARCOPA [Concomitant]
     Active Substance: CARBIDOPA\LEVODOPA
  4. DIAZEPAM. [Concomitant]
     Active Substance: DIAZEPAM
  5. APOKYN [Suspect]
     Active Substance: APOMORPHINE HYDROCHLORIDE
     Indication: PARKINSON^S DISEASE
     Route: 058
     Dates: start: 20180105

REACTIONS (6)
  - Muscle rigidity [Recovered/Resolved]
  - Musculoskeletal stiffness [Recovered/Resolved]
  - Psychomotor hyperactivity [Recovered/Resolved]
  - Nuchal rigidity [Recovered/Resolved]
  - Dyskinesia [Recovered/Resolved]
  - Nausea [Recovered/Resolved]

NARRATIVE: CASE EVENT DATE: 20180105
